FAERS Safety Report 10366502 (Version 1)
Quarter: 2014Q3

REPORT INFORMATION
  Report Type: Spontaneous
  Country: EG (occurrence: EG)
  Receive Date: 20140806
  Receipt Date: 20140806
  Transmission Date: 20150326
  Serious: Yes (Hospitalization, Other)
  Sender: FDA-Public Use
  Company Number: EG-PFIZER INC-2014216897

PATIENT
  Age: 90 Year
  Sex: Female

DRUGS (2)
  1. TRILEPTAL [Concomitant]
     Active Substance: OXCARBAZEPINE
     Indication: NERVOUS SYSTEM DISORDER
     Dosage: UNK
     Route: 048
  2. LYRICA [Suspect]
     Active Substance: PREGABALIN
     Indication: DIABETIC NEUROPATHY
     Dosage: 150 MG, 2X/DAY
     Route: 048
     Dates: start: 20140721, end: 20140724

REACTIONS (2)
  - Gastrointestinal motility disorder [Unknown]
  - Intestinal obstruction [Recovered/Resolved]
